FAERS Safety Report 17069981 (Version 1)
Quarter: 2019Q4

REPORT INFORMATION
  Report Type: Spontaneous
  Country: US (occurrence: US)
  Receive Date: 20191125
  Receipt Date: 20191125
  Transmission Date: 20200122
  Serious: No
  Sender: FDA-Public Use
  Company Number: US-HIKMA PHARMACEUTICALS USA INC.-US-H14001-18-09021

PATIENT
  Sex: Male

DRUGS (1)
  1. IPRATROPIUM BROMIDE. [Suspect]
     Active Substance: IPRATROPIUM BROMIDE
     Indication: PAROSMIA
     Route: 045
     Dates: start: 20181211

REACTIONS (3)
  - Accidental underdose [Unknown]
  - Product use in unapproved indication [Unknown]
  - Epistaxis [Recovered/Resolved]
